FAERS Safety Report 14825792 (Version 4)
Quarter: 2018Q4

REPORT INFORMATION
  Report Type: Spontaneous
  Country: GR (occurrence: GR)
  Receive Date: 20180430
  Receipt Date: 20180730
  Transmission Date: 20190204
  Serious: Yes (Other)
  Sender: FDA-Public Use
  Company Number: GR-ACCORD-066295

PATIENT
  Age: 65 Year
  Sex: Male

DRUGS (3)
  1. PEMETREXED. [Suspect]
     Active Substance: PEMETREXED
     Indication: LUNG ADENOCARCINOMA
     Dosage: 6 CYCLES ALONG WITH CARBOPLATIN
  2. CARBOPLATIN. [Suspect]
     Active Substance: CARBOPLATIN
     Indication: LUNG ADENOCARCINOMA
     Dosage: 6 CYCLES ALONG WITH GEMCITABINE
  3. GEMCITABINE/GEMCITABINE HYDROCHLORIDE [Suspect]
     Active Substance: GEMCITABINE\GEMCITABINE HYDROCHLORIDE
     Indication: LUNG ADENOCARCINOMA
     Dosage: 6 CYCLES ALONG WITH PEMETREXED

REACTIONS (1)
  - Disease recurrence [Unknown]
